FAERS Safety Report 6662931-1 (Version None)
Quarter: 2010Q2

REPORT INFORMATION
  Report Type: 
  Country: None (occurrence: None)
  Receive Date: 20100401
  Receipt Date: 20100318
  Transmission Date: 20101027
  Serious: Yes (Other)
  Sender: FDA-Public Use
  Company Number: IL-RANBAXY-2010RR-32762

PATIENT
  Age: 68 Year
  Sex: Female

DRUGS (6)
  1. SIMVASTATIN [Suspect]
  2. MICROPIRIN [Suspect]
  3. ENALAPRIL MALEATE [Suspect]
  4. OMEPRADEX [Suspect]
  5. LOVIRAN [Concomitant]
  6. FOSALAN [Concomitant]

REACTIONS (1)
  - DERMATITIS [None]
